FAERS Safety Report 8804406 (Version 2)
Quarter: 2013Q1

REPORT INFORMATION
  Report Type: Spontaneous
  Country: BR (occurrence: BR)
  Receive Date: 20120924
  Receipt Date: 20130315
  Transmission Date: 20140127
  Serious: Yes (Other)
  Sender: FDA-Public Use
  Company Number: BR-ABBOTT-12P-020-0968358-00

PATIENT
  Sex: Female
  Weight: 59 kg

DRUGS (3)
  1. DEPAKENE CAPSULES [Suspect]
     Indication: EPILEPSY
     Dates: start: 201203
  2. DEPAKOTE ER [Suspect]
     Indication: EPILEPSY
     Dosage: 2 TIMES DAILY
     Route: 048
     Dates: start: 20120402, end: 201209
  3. PARACETAMOL [Concomitant]
     Indication: HEADACHE

REACTIONS (9)
  - Epilepsy [Recovered/Resolved]
  - Discomfort [Unknown]
  - Dizziness [Not Recovered/Not Resolved]
  - Dyspnoea [Not Recovered/Not Resolved]
  - Fatigue [Not Recovered/Not Resolved]
  - Decreased appetite [Unknown]
  - Irritability [Unknown]
  - Hyperchlorhydria [Unknown]
  - Drug ineffective [Unknown]
